FAERS Safety Report 7041451-9 (Version None)
Quarter: 2010Q4

REPORT INFORMATION
  Report Type: 
  Country: None (occurrence: None)
  Receive Date: 20101013
  Receipt Date: 20101007
  Transmission Date: 20110411
  Serious: Yes (Hospitalization)
  Sender: FDA-Public Use
  Company Number: US-WYE-H18062210

PATIENT
  Sex: Female
  Weight: 64.47 kg

DRUGS (9)
  1. PRISTIQ [Suspect]
     Indication: DEPRESSION
     Route: 048
     Dates: start: 20091009, end: 20091222
  2. KLOR-CON [Concomitant]
     Route: 048
  3. SPIRONOLACTONE [Concomitant]
     Route: 048
  4. LISINOPRIL [Concomitant]
     Route: 048
  5. ERGOCALCIFEROL [Concomitant]
     Dosage: ^50000 UNITS^, UNSPECIFIED FREQUENCY
     Route: 048
  6. CIPROFLOXACIN [Concomitant]
     Route: 048
  7. POTASSIUM CHLORIDE [Concomitant]
     Route: 048
  8. GLIMEPIRIDE [Concomitant]
  9. OXYBUTYNIN [Concomitant]
     Route: 048

REACTIONS (3)
  - FALL [None]
  - LOSS OF CONSCIOUSNESS [None]
  - SYNCOPE [None]
